FAERS Safety Report 15386470 (Version 1)
Quarter: 2018Q3

REPORT INFORMATION
  Report Type: Report from Study
  Country: JP (occurrence: JP)
  Receive Date: 20180914
  Receipt Date: 20180914
  Transmission Date: 20181010
  Serious: Yes (Death, Life-Threatening)
  Sender: FDA-Public Use
  Company Number: JP-PFIZER INC-2018366876

PATIENT
  Age: 67 Year
  Sex: Male
  Weight: 67.9 kg

DRUGS (21)
  1. BAKTAR [Concomitant]
     Active Substance: SULFAMETHOXAZOLE\TRIMETHOPRIM
     Dosage: 1
     Dates: start: 20180703
  2. OLIVE OIL [Concomitant]
     Active Substance: OLIVE OIL
     Dosage: 5 ML, UNK
     Dates: start: 20180704
  3. HYALEIN MINI [Concomitant]
     Active Substance: HYALURONATE SODIUM
     Dosage: 2 GTT, UNK
     Dates: start: 20180620
  4. NERIZA [Concomitant]
     Dosage: UNK
     Dates: start: 20180628
  5. NEOSTELIN GREEN [Concomitant]
     Active Substance: BENZETHONIUM CHLORIDE
     Dosage: 6 ML, UNK
     Dates: start: 20180529
  6. HUMULIN R [Concomitant]
     Active Substance: INSULIN HUMAN
     Dosage: 1.0 ? 1.7 ML
     Dates: start: 20180713
  7. METHYLPREDNISOLONE SODIUM SUCCINATE. [Suspect]
     Active Substance: METHYLPREDNISOLONE SODIUM SUCCINATE
     Indication: ACUTE GRAFT VERSUS HOST DISEASE
     Dosage: 120 MG, QD
     Route: 042
     Dates: start: 20180712, end: 20180717
  8. LANSOPRAZOLE. [Concomitant]
     Active Substance: LANSOPRAZOLE
     Dosage: 15 MG, DRUG UNSPECIFIED FORM
     Route: 048
     Dates: start: 20180214
  9. ZINC OXIDE SIMPLE OINTMENT [Concomitant]
     Active Substance: ZINC OXIDE
     Dosage: 1 G, CREAM
     Dates: start: 20180704
  10. MEROPENEM. [Concomitant]
     Active Substance: MEROPENEM
     Dosage: 3 G, UNK
     Route: 042
     Dates: start: 20180711
  11. ISOTONIC SODIUM CHLORIDE SOLUTION [Concomitant]
     Active Substance: SODIUM CHLORIDE
     Dosage: 1000 ML, UNK
     Route: 042
     Dates: start: 20180710
  12. METHOTREXATE. [Concomitant]
     Active Substance: METHOTREXATE
     Route: 051
  13. ACYCLOVIR. [Concomitant]
     Active Substance: ACYCLOVIR
  14. BISOPROLOL FUMARATE. [Concomitant]
     Active Substance: BISOPROLOL FUMARATE
     Dosage: 7.5 MG, DRUG UNSPECIFIED FORM
     Route: 048
     Dates: start: 20180131
  15. SERENACE [Concomitant]
     Active Substance: HALOPERIDOL
     Dosage: 0.25 MG, UNK
     Route: 042
     Dates: start: 20180713
  16. LIXIANA [Suspect]
     Active Substance: EDOXABAN TOSYLATE
     Dosage: 50 MG, UNK
     Dates: start: 20180109, end: 20180626
  17. HEPARINOID [Concomitant]
     Active Substance: CHONDROITIN SULFATE (BOVINE)
     Dosage: UNK
     Dates: start: 20180525
  18. INCB039110 [Suspect]
     Active Substance: INVESTIGATIONAL PRODUCT
     Indication: ACUTE GRAFT VERSUS HOST DISEASE
     Dosage: 200 MG, QD
     Route: 048
     Dates: start: 20180713, end: 20180717
  19. LEVOFLOXACIN. [Concomitant]
     Active Substance: LEVOFLOXACIN
  20. DIFLUCAN [Concomitant]
     Active Substance: FLUCONAZOLE
     Dosage: 100 MG, UNK
     Dates: start: 20180703
  21. PROGRAF [Concomitant]
     Active Substance: TACROLIMUS\TACROLIMUS ANHYDROUS

REACTIONS (3)
  - Presyncope [Not Recovered/Not Resolved]
  - Lower gastrointestinal haemorrhage [Fatal]
  - Condition aggravated [Fatal]

NARRATIVE: CASE EVENT DATE: 20180716
